FAERS Safety Report 9509612 (Version 2)
Quarter: 2013Q3

REPORT INFORMATION
  Report Type: Spontaneous
  Country: US (occurrence: US)
  Receive Date: 20130909
  Receipt Date: 20130909
  Transmission Date: 20140515
  Serious: No
  Sender: FDA-Public Use
  Company Number: US-BRISTOL-MYERS SQUIBB COMPANY-18910950

PATIENT
  Age: 5 Decade
  Sex: Female

DRUGS (4)
  1. ABILIFY TABS 2 MG [Suspect]
  2. CELEXA [Suspect]
  3. KLONOPIN [Suspect]
  4. TOPIRAMATE [Suspect]

REACTIONS (1)
  - Hypomania [Unknown]
